FAERS Safety Report 21916937 (Version 2)
Quarter: 2023Q2

REPORT INFORMATION
  Report Type: Report from Study
  Country: US (occurrence: US)
  Receive Date: 20230126
  Receipt Date: 20230517
  Transmission Date: 20230721
  Serious: Yes (Hospitalization)
  Sender: FDA-Public Use
  Company Number: US-BoehringerIngelheim-2021-BI-121031

PATIENT
  Sex: Female

DRUGS (1)
  1. OFEV [Suspect]
     Active Substance: NINTEDANIB
     Indication: Idiopathic pulmonary fibrosis
     Dosage: ADD LOT 105560,106515
     Route: 048
     Dates: start: 20170515

REACTIONS (13)
  - Influenza [Unknown]
  - Pneumonia [Unknown]
  - Dehydration [Unknown]
  - Diarrhoea [Unknown]
  - Nausea [Unknown]
  - Sleep disorder [Unknown]
  - Asthenia [Unknown]
  - Allergy to animal [Unknown]
  - Seasonal allergy [Unknown]
  - Multiple allergies [Not Recovered/Not Resolved]
  - Vomiting [Unknown]
  - Renal impairment [Unknown]
  - Dysphonia [Unknown]
